FAERS Safety Report 4620379-5 (Version None)
Quarter: 2005Q1

REPORT INFORMATION
  Report Type: 
  Country: None (occurrence: None)
  Receive Date: 20050328
  Receipt Date: 20050321
  Transmission Date: 20050727
  Serious: Yes (Hospitalization)
  Sender: FDA-Public Use
  Company Number: US-MERCK-0503USA04063

PATIENT
  Age: 52 Year
  Sex: Female

DRUGS (1)
  1. INVANZ [Suspect]
     Route: 065

REACTIONS (1)
  - STAPHYLOCOCCAL INFECTION [None]
